FAERS Safety Report 24759662 (Version 1)
Quarter: 2024Q4

REPORT INFORMATION
  Report Type: Spontaneous
  Country: CN (occurrence: CN)
  Receive Date: 20241220
  Receipt Date: 20241220
  Transmission Date: 20250114
  Serious: Yes (Life-Threatening)
  Sender: ORGANON
  Company Number: CN-ORGANON-O2412CHN001642

PATIENT
  Age: 83 Year
  Sex: Male
  Weight: 50 kg

DRUGS (1)
  1. DIPROSPAN [Suspect]
     Active Substance: BETAMETHASONE DIPROPIONATE\BETAMETHASONE SODIUM PHOSPHATE
     Indication: Arthralgia
     Dosage: BLOCK, 0.3ML, QD
     Dates: start: 20241125, end: 20241125

REACTIONS (1)
  - Cardiovascular disorder [Recovering/Resolving]

NARRATIVE: CASE EVENT DATE: 20241127
